FAERS Safety Report 23777824 (Version 1)
Quarter: 2024Q2

REPORT INFORMATION
  Report Type: Report from Study
  Country: CN (occurrence: CN)
  Receive Date: 20240424
  Receipt Date: 20240424
  Transmission Date: 20240716
  Serious: Yes (Other)
  Sender: FDA-Public Use
  Company Number: CN-BAYER-2024A054944

PATIENT
  Age: 72 Year
  Sex: Female

DRUGS (1)
  1. NEXAVAR [Suspect]
     Active Substance: SORAFENIB
     Indication: Renal cell carcinoma
     Dosage: UNK

REACTIONS (6)
  - Cerebral infarction [Unknown]
  - Swelling face [Unknown]
  - Peripheral swelling [Unknown]
  - Urinary incontinence [Unknown]
  - Thyroid disorder [Unknown]
  - Decreased immune responsiveness [Unknown]
